FAERS Safety Report 11851928 (Version 3)
Quarter: 2016Q2

REPORT INFORMATION
  Report Type: Report from Study
  Country: NL (occurrence: NL)
  Receive Date: 20151218
  Receipt Date: 20160426
  Transmission Date: 20160815
  Serious: Yes (Hospitalization, Other)
  Sender: FDA-Public Use
  Company Number: NL-ABBVIE-15P-114-1520052-00

PATIENT
  Sex: Female
  Weight: 100 kg

DRUGS (2)
  1. LUCRIN DEPOT [Suspect]
     Active Substance: LEUPROLIDE ACETATE
     Indication: BREAST CANCER FEMALE
     Route: 058
     Dates: start: 20140429, end: 20141014
  2. LUCRIN DEPOT [Suspect]
     Active Substance: LEUPROLIDE ACETATE
     Route: 058
     Dates: start: 20141015, end: 20160215

REACTIONS (2)
  - Ovarian enlargement [Recovered/Resolved]
  - Uterine cyst [Not Recovered/Not Resolved]
